FAERS Safety Report 16542168 (Version 1)
Quarter: 2019Q3

REPORT INFORMATION
  Report Type: Spontaneous
  Country: US (occurrence: US)
  Receive Date: 20190708
  Receipt Date: 20190708
  Transmission Date: 20191004
  Serious: No
  Sender: FDA-Public Use
  Company Number: US-TEIKOKU PHARMA USA-TPU2019-00493

PATIENT
  Age: 67 Year
  Sex: Female
  Weight: 51.3 kg

DRUGS (4)
  1. CARAFATE [Concomitant]
     Active Substance: SUCRALFATE
     Indication: ULCER
     Route: 048
  2. LIDOCAINE PATCH [Suspect]
     Active Substance: LIDOCAINE
     Indication: PAIN
     Dates: start: 2000, end: 201904
  3. TOPAMATE [Concomitant]
     Active Substance: TOPIRAMATE
     Indication: MIGRAINE PROPHYLAXIS
  4. SUMATRIPTAN. [Concomitant]
     Active Substance: SUMATRIPTAN
     Indication: MIGRAINE

REACTIONS (6)
  - Gait inability [Not Recovered/Not Resolved]
  - Migraine [Not Recovered/Not Resolved]
  - Product availability issue [Not Recovered/Not Resolved]
  - Pain [Not Recovered/Not Resolved]
  - Middle insomnia [Not Recovered/Not Resolved]
  - Body height decreased [Not Recovered/Not Resolved]

NARRATIVE: CASE EVENT DATE: 201904
